FAERS Safety Report 17051379 (Version 3)
Quarter: 2019Q4

REPORT INFORMATION
  Report Type: Report from Study
  Country: KR (occurrence: KR)
  Receive Date: 20191120
  Receipt Date: 20191219
  Transmission Date: 20200122
  Serious: Yes (Hospitalization)
  Sender: FDA-Public Use
  Company Number: KR-CELLTRION INC.-2019KR026600

PATIENT

DRUGS (16)
  1. REMSIMA [Suspect]
     Active Substance: INFLIXIMAB
     Dosage: 200 MG (5TH ADMIN)
     Route: 042
     Dates: start: 20181018, end: 20181018
  2. REMSIMA [Suspect]
     Active Substance: INFLIXIMAB
     Dosage: 200 MG (8TH ADMIN)
     Route: 042
     Dates: start: 20190312, end: 20190312
  3. MESALAZINE [Suspect]
     Active Substance: MESALAMINE
     Dosage: 1 DF, TID
     Route: 048
     Dates: start: 20190604, end: 20190805
  4. LACIDOFIL [LACTOBACILLUS HELVETICUS;LACTOBACILLUS RHAMNOSUS] [Concomitant]
     Indication: CROHN^S DISEASE
     Dosage: 1 DF BID
     Route: 048
     Dates: start: 20171103
  5. REMSIMA [Suspect]
     Active Substance: INFLIXIMAB
     Dosage: 200 MG (9H ADMIN)
     Route: 042
     Dates: start: 20190604, end: 20190604
  6. BESZYME [Concomitant]
     Indication: CROHN^S DISEASE
     Dosage: 1 DF, TID
     Route: 048
     Dates: start: 20190604, end: 20190722
  7. PANTOPRAZOLE SODIUM SESQUIHYDRATE [Suspect]
     Active Substance: PANTOPRAZOLE SODIUM
     Indication: CROHN^S DISEASE
     Dosage: 1 TABLET QD
     Route: 048
     Dates: start: 20190604
  8. MESALAZINE [Suspect]
     Active Substance: MESALAMINE
     Indication: CROHN^S DISEASE
     Dosage: 1 G TID
     Route: 048
     Dates: start: 20130822
  9. REMSIMA [Suspect]
     Active Substance: INFLIXIMAB
     Dosage: 200 MG (2ND ADMIN)
     Route: 042
     Dates: start: 20180515, end: 20180515
  10. REMSIMA [Suspect]
     Active Substance: INFLIXIMAB
     Dosage: 200 MG ( 3RD ADMIN)
     Route: 042
     Dates: start: 20180612, end: 20180612
  11. LOPERAMIDE HYDROCHLORIDE. [Suspect]
     Active Substance: LOPERAMIDE HYDROCHLORIDE
     Indication: CROHN^S DISEASE
     Dosage: 1 DF, BID
     Route: 048
     Dates: start: 20190719
  12. REMSIMA [Suspect]
     Active Substance: INFLIXIMAB
     Dosage: 200 MG (4TH ADMIN)
     Route: 042
     Dates: start: 20180807, end: 20180807
  13. REMSIMA [Suspect]
     Active Substance: INFLIXIMAB
     Dosage: 200 MG (7TH ADMIN)
     Route: 042
     Dates: start: 20181220, end: 20181220
  14. LACIDOFIL [LACTOBACILLUS HELVETICUS;LACTOBACILLUS RHAMNOSUS] [Concomitant]
     Dosage: 1 DF, BID
     Route: 048
     Dates: start: 20190604, end: 20190724
  15. DIOCTAHEDRAL SMECTITE [Suspect]
     Active Substance: MONTMORILLONITE
     Indication: CROHN^S DISEASE
     Dosage: 20 ML, TID
     Route: 048
     Dates: start: 20190618, end: 20190705
  16. REMSIMA [Suspect]
     Active Substance: INFLIXIMAB
     Indication: CROHN^S DISEASE
     Dosage: 200 MG (1ST ADMIN)
     Route: 042
     Dates: start: 20180503, end: 20180503

REACTIONS (7)
  - Depression [Unknown]
  - Clostridium difficile colitis [Recovered/Resolved]
  - Product use issue [Unknown]
  - Cholelithiasis [Unknown]
  - Pleural effusion [Unknown]
  - Postoperative abscess [Unknown]
  - Seizure [Recovered/Resolved]

NARRATIVE: CASE EVENT DATE: 20180927
